FAERS Safety Report 4611804-4 (Version None)
Quarter: 2005Q1

REPORT INFORMATION
  Report Type: 
  Country: None (occurrence: None)
  Receive Date: 20050317
  Receipt Date: 20050228
  Transmission Date: 20050727
  Serious: Yes (Death)
  Sender: FDA-Public Use
  Company Number: US-ABBOTT-05P-163-0292186-00

PATIENT
  Sex: Male

DRUGS (13)
  1. SYNTHROID [Suspect]
     Indication: THYROID FUNCTION TEST ABNORMAL
     Route: 048
     Dates: start: 19990501, end: 20050211
  2. TELMISARTAN [Concomitant]
     Indication: DRUG USE FOR UNKNOWN INDICATION
  3. AMLODIPINE BESYLATE [Concomitant]
     Indication: DRUG USE FOR UNKNOWN INDICATION
  4. GALANTAMINE [Concomitant]
     Indication: DRUG USE FOR UNKNOWN INDICATION
  5. EFFEXOR [Concomitant]
     Indication: DRUG USE FOR UNKNOWN INDICATION
  6. PRAVASTATIN SODIUM [Concomitant]
     Indication: DRUG USE FOR UNKNOWN INDICATION
  7. POTASSIUM CHLORIDE [Concomitant]
     Indication: DRUG USE FOR UNKNOWN INDICATION
  8. QUININE SULFATE [Concomitant]
     Indication: DRUG USE FOR UNKNOWN INDICATION
  9. FUROSEMIDE [Concomitant]
     Indication: DRUG USE FOR UNKNOWN INDICATION
  10. COUMADIN [Concomitant]
     Indication: DRUG USE FOR UNKNOWN INDICATION
  11. ACETYLSALICYLIC ACID SRT [Concomitant]
     Indication: DRUG USE FOR UNKNOWN INDICATION
  12. PARACETAMOL [Concomitant]
     Indication: DRUG USE FOR UNKNOWN INDICATION
  13. MULTI-VITAMINS [Concomitant]
     Indication: DRUG USE FOR UNKNOWN INDICATION

REACTIONS (3)
  - ARRHYTHMIA [None]
  - ATHEROSCLEROSIS [None]
  - CARDIOMYOPATHY [None]
